FAERS Safety Report 15888035 (Version 1)
Quarter: 2019Q1

REPORT INFORMATION
  Report Type: Spontaneous
  Country: DE (occurrence: DE)
  Receive Date: 20190130
  Receipt Date: 20190130
  Transmission Date: 20190417
  Serious: Yes (Hospitalization)
  Sender: FDA-Public Use
  Company Number: DE-ACCORD-104163

PATIENT
  Age: 67 Year
  Sex: Female
  Weight: 83 kg

DRUGS (9)
  1. INSULIN LISPRO/INSULIN LISPRO PROTAMINE SUSPE [Concomitant]
     Dosage: NACH BZ, INJECTION / INFUSION SOLUTION
     Route: 058
  2. SPIRONOLACTONE. [Suspect]
     Active Substance: SPIRONOLACTONE
     Indication: PRODUCT USED FOR UNKNOWN INDICATION
     Dosage: 50 MG, 1-1-0-0, TABLETS
     Route: 048
  3. OPIPRAMOL/OPIPRAMOL HYDROCHLORIDE [Concomitant]
     Dosage: 50 MG, 0-0-1-0, TABLETS
     Route: 048
  4. INSULIN GLARGINE [Concomitant]
     Active Substance: INSULIN GLARGINE
     Dosage: 12 IE, 0-0-0-1, INJECTION / INFUSION SOLUTION
     Route: 058
  5. RAMIPRIL. [Suspect]
     Active Substance: RAMIPRIL
     Indication: PRODUCT USED FOR UNKNOWN INDICATION
     Dosage: 1.25 MG, 1-0-0-0, TABLETS
     Route: 048
  6. SIMVASTATIN. [Concomitant]
     Active Substance: SIMVASTATIN
     Dosage: 30 MG, 0-0-1-0, TABLETS
     Route: 048
  7. CARVEDILOL/CARVEDILOL HYDROCHLODRIDE [Concomitant]
     Dosage: 6.25 MG, 1-0-1-0, TABLETS
     Route: 048
  8. PANTOPRAZOLE [Concomitant]
     Active Substance: PANTOPRAZOLE
     Dosage: 40 MG, 1-0-0-0, TABLETS
     Route: 048
  9. TORASEMIDE [Suspect]
     Active Substance: TORSEMIDE
     Indication: PRODUCT USED FOR UNKNOWN INDICATION
     Dosage: 10 MG, 1-0-0-0, TABLETS
     Route: 048

REACTIONS (2)
  - General physical health deterioration [Unknown]
  - Acute kidney injury [Unknown]
